FAERS Safety Report 4284162-5 (Version None)
Quarter: 2004Q1

REPORT INFORMATION
  Report Type: 
  Country: None (occurrence: None)
  Receive Date: 20040203
  Receipt Date: 20040122
  Transmission Date: 20041129
  Serious: Yes (Other)
  Sender: FDA-Public Use
  Company Number: CH-GLAXOSMITHKLINE-B0320750A

PATIENT
  Sex: Female

DRUGS (2)
  1. MALARONE [Suspect]
     Indication: MALARIA PROPHYLAXIS
     Route: 048
     Dates: start: 20031201, end: 20031201
  2. OXCARBAZEPINE [Concomitant]
     Indication: EPILEPSY
     Dosage: 150MG TWICE PER DAY
     Route: 048

REACTIONS (2)
  - CONVULSION [None]
  - EPILEPSY [None]
